FAERS Safety Report 7000399-6 (Version None)
Quarter: 2010Q3

REPORT INFORMATION
  Report Type: 
  Country: None (occurrence: None)
  Receive Date: 20100920
  Receipt Date: 20100315
  Transmission Date: 20110219
  Serious: No
  Sender: FDA-Public Use
  Company Number: US-ASTRAZENECA-2010SE11344

PATIENT
  Age: 25 Year
  Sex: Male
  Weight: 108.9 kg

DRUGS (5)
  1. SEROQUEL [Suspect]
     Indication: BIPOLAR DISORDER
     Route: 048
     Dates: start: 20090101
  2. SEROQUEL [Suspect]
     Route: 048
     Dates: start: 20090101
  3. LEXAPRO [Concomitant]
  4. TOPAMAX [Concomitant]
  5. TOFRANIL [Concomitant]

REACTIONS (2)
  - FOOD CRAVING [None]
  - WEIGHT INCREASED [None]
